FAERS Safety Report 9078294 (Version 1)
Quarter: 2013Q1

REPORT INFORMATION
  Report Type: Report from Study
  Country: US (occurrence: US)
  Receive Date: 20130130
  Receipt Date: 20130130
  Transmission Date: 20140127
  Serious: No
  Sender: FDA-Public Use
  Company Number: US-ABBOTT-12P-163-0958722-00

PATIENT
  Age: 64 Year
  Sex: Female

DRUGS (6)
  1. HUMIRA 40 MG/0.8 ML PEN [Suspect]
     Indication: RHEUMATOID ARTHRITIS
     Dates: start: 2004
  2. HUMIRA 40 MG/0.8 ML PEN [Suspect]
     Dates: start: 201207
  3. FOLIC ACID [Concomitant]
     Indication: PRODUCT USED FOR UNKNOWN INDICATION
     Dosage: 3 MG DAILY
     Route: 048
  4. METHOTREXATE [Concomitant]
     Indication: RHEUMATOID ARTHRITIS
  5. SYNTHROID [Concomitant]
     Indication: HYPOTHYROIDISM
     Route: 048
  6. ACTONEL [Concomitant]
     Indication: OSTEOPENIA

REACTIONS (12)
  - Palmar erythema [Recovering/Resolving]
  - Pain of skin [Recovering/Resolving]
  - Skin induration [Recovering/Resolving]
  - Erythema [Unknown]
  - Pain of skin [Unknown]
  - Rash papular [Unknown]
  - Joint swelling [Recovering/Resolving]
  - Contusion [Recovering/Resolving]
  - Arthritis [Recovering/Resolving]
  - Joint swelling [Not Recovered/Not Resolved]
  - Skin fissures [Not Recovered/Not Resolved]
  - Tendon disorder [Not Recovered/Not Resolved]
